FAERS Safety Report 25621431 (Version 1)
Quarter: 2025Q3

REPORT INFORMATION
  Report Type: Spontaneous
  Country: US (occurrence: US)
  Receive Date: 20250730
  Receipt Date: 20250730
  Transmission Date: 20251020
  Serious: Yes (Hospitalization)
  Sender: BIOCON
  Company Number: US-BIOCON-BCN-2025-000229

PATIENT
  Age: 69 Year
  Sex: Male

DRUGS (7)
  1. TACROLIMUS [Suspect]
     Active Substance: TACROLIMUS
     Indication: Heart transplant
     Dosage: 2.5 MG IN THE MORNING AND 2 MG IN THE EVENING
  2. TACROLIMUS [Suspect]
     Active Substance: TACROLIMUS
     Dosage: 2 MG IN THE MORNING AND 1 MG IN THE EVENING; 7 MONTHS AFTER TRANSPLANT
  3. TACROLIMUS [Suspect]
     Active Substance: TACROLIMUS
     Dosage: 1 MG TWICE A DAY; 14 MONTHS AFTER TRANSPLANT
  4. MYCOPHENOLATE MOFETIL [Suspect]
     Active Substance: MYCOPHENOLATE MOFETIL
     Indication: Heart transplant
     Dosage: 540 MG TWICE A DAY
  5. PREDNISONE [Suspect]
     Active Substance: PREDNISONE
     Indication: Heart transplant
     Dosage: 5 MG DAILY
  6. ISAVUCONAZONIUM SULFATE [Concomitant]
     Active Substance: ISAVUCONAZONIUM SULFATE
     Indication: Infection prophylaxis
  7. ATOVAQUONE [Concomitant]
     Active Substance: ATOVAQUONE
     Indication: Infection prophylaxis

REACTIONS (2)
  - Kaposi^s sarcoma [Recovering/Resolving]
  - Atrial flutter [Unknown]
